FAERS Safety Report 6522341 (Version 3)
Quarter: 2020Q3

REPORT INFORMATION
  Report Type: Report from Study
  Country: GB (occurrence: GB)
  Receive Date: 20080109
  Receipt Date: 20080408
  Transmission Date: 20201104
  Serious: Yes (Life-Threatening, Hospitalization)
  Sender: FDA-Public Use
  Company Number: GB-ROCHE-539081

PATIENT
  Age: 77 Year
  Sex: Female
  Weight: 54.4 kg

DRUGS (10)
  1. EMULSIFYING OINTMENT [Concomitant]
  2. COCODAMOL [Concomitant]
     Active Substance: ACETAMINOPHEN\CODEINE PHOSPHATE
     Dosage: 2 FOUR TIMES A DAY AS REQUIRED
  3. CALCICHEW D3 FORTE [Concomitant]
     Dosage: 100 TABLET
  4. COCODAMOL [Concomitant]
     Active Substance: ACETAMINOPHEN\CODEINE PHOSPHATE
     Dosage: 2 FOUR TIMES A DAY AS REQUIRED
  5. IBANDRONIC ACID. [Suspect]
     Active Substance: IBANDRONIC ACID
     Indication: OSTEOPOROSIS
     Route: 048
     Dates: start: 20071112, end: 20071113
  6. GLUCOSAMINE [Concomitant]
     Active Substance: GLUCOSAMINE
     Dosage: PRESCRIBED FOR JOINTS.
     Route: 048
  7. CALCIUM CARBONATE. [Concomitant]
     Active Substance: CALCIUM CARBONATE
     Dosage: 100 TABLET
  8. WAX, EMULSIFYING [Concomitant]
  9. EMULSIFYING OINTMENT [Concomitant]
  10. FOSAMAX [Concomitant]
     Active Substance: ALENDRONATE SODIUM

REACTIONS (1)
  - Pneumococcal bacteraemia [Recovering/Resolving]

NARRATIVE: CASE EVENT DATE: 20071127
